FAERS Safety Report 6443015 (Version 2)
Quarter: 2013Q1

REPORT INFORMATION
  Report Type: Spontaneous
  Country: ES (occurrence: None)
  Receive Date: 20071004
  Receipt Date: 20121227
  Transmission Date: 20140127
  Serious: Yes (Hospitalization, Other)
  Sender: FDA-Public Use
  Company Number: 2007US-10139

PATIENT
  Age: 49 Year
  Sex: Female

DRUGS (3)
  1. CLORAZEPATE DIPOTASSIUM [Suspect]
     Indication: PRODUCT USED FOR UNKNOWN INDICATION
  2. ZIPRASIDONE [Suspect]
     Indication: PRODUCT USED FOR UNKNOWN INDICATION
     Dosage: 235 20 MG TABS, 4700MG IN 1 DOSE, ORAL
     Route: 048
  3. TOPIRAMATE [Concomitant]

REACTIONS (7)
  - Somnolence [None]
  - Intentional overdose [None]
  - Miosis [None]
  - Blood pressure systolic decreased [None]
  - Unresponsive to stimuli [None]
  - Depression [None]
  - Depressed level of consciousness [None]
